FAERS Safety Report 5616704-9 (Version None)
Quarter: 2008Q1

REPORT INFORMATION
  Report Type: 
  Country: None (occurrence: None)
  Receive Date: 20080207
  Receipt Date: 20080129
  Transmission Date: 20080703
  Serious: Yes (Hospitalization, Other)
  Sender: FDA-Public Use
  Company Number: PHHY2008BR01089

PATIENT
  Age: 61 Year
  Sex: Female
  Weight: 73 kg

DRUGS (5)
  1. HYDROCHLOROTHIAZIDE [Concomitant]
     Indication: HYPERTENSION
     Dosage: 20 MG, QD
     Route: 048
  2. CAPTOPRIL [Concomitant]
     Indication: HYPERTENSION
     Dosage: 25 MG, QD
     Route: 048
  3. LORATADINE [Concomitant]
     Indication: HYPERSENSITIVITY
     Dosage: 1 TABLET EVERY ALTERNATE DAY
     Route: 048
  4. FORASEQ [Suspect]
     Indication: ASTHMA
     Dosage: FORMETEROL + BUDESONIDE, 1 CAPSULE EACH, BID
  5. FORASEQ [Suspect]
     Dosage: FORMOTEROL + BUDESONIDE,1CAPSULE EACH, TID.

REACTIONS (6)
  - BLOOD PRESSURE INCREASED [None]
  - BLOOD PRESSURE SYSTOLIC INCREASED [None]
  - COUGH [None]
  - GENERALISED ERYTHEMA [None]
  - HYPERSENSITIVITY [None]
  - RASH PAPULAR [None]
